FAERS Safety Report 17249816 (Version 5)
Quarter: 2020Q4

REPORT INFORMATION
  Report Type: Spontaneous
  Country: US (occurrence: US)
  Receive Date: 20200109
  Receipt Date: 20201113
  Transmission Date: 20210113
  Serious: Yes (Other)
  Sender: FDA-Public Use
  Company Number: US-SHIRE-US202000426

PATIENT
  Age: 75 Year
  Sex: Male

DRUGS (12)
  1. GATTEX [Suspect]
     Active Substance: TEDUGLUTIDE\WATER
     Indication: SHORT-BOWEL SYNDROME
     Dosage: 1.7 UNK, 1X/DAY:QD
     Route: 058
     Dates: start: 20180427
  2. GATTEX [Suspect]
     Active Substance: TEDUGLUTIDE\WATER
     Dosage: 0.1500 UNK, 1X/DAY:QD
     Route: 058
     Dates: start: 20180427
  3. GATTEX [Suspect]
     Active Substance: TEDUGLUTIDE\WATER
     Dosage: 0.1500 UNK, 1X/DAY:QD
     Route: 058
     Dates: start: 20180427
  4. GATTEX [Suspect]
     Active Substance: TEDUGLUTIDE\WATER
     Dosage: 1.67 MILLIGRAM, 1X/DAY:QD
     Route: 058
     Dates: start: 20190410, end: 20200117
  5. GATTEX [Suspect]
     Active Substance: TEDUGLUTIDE\WATER
     Indication: SHORT-BOWEL SYNDROME
     Dosage: 1.7 UNK, 1X/DAY:QD
     Route: 058
     Dates: start: 20180427
  6. GATTEX [Suspect]
     Active Substance: TEDUGLUTIDE\WATER
     Dosage: 0.1500 UNK, 1X/DAY:QD
     Route: 058
     Dates: start: 20180427
  7. GATTEX [Suspect]
     Active Substance: TEDUGLUTIDE\WATER
     Indication: SHORT-BOWEL SYNDROME
     Dosage: 1.7 UNK, 1X/DAY:QD
     Route: 058
     Dates: start: 20180427
  8. GATTEX [Suspect]
     Active Substance: TEDUGLUTIDE\WATER
     Indication: SHORT-BOWEL SYNDROME
     Dosage: 1.7 UNK, 1X/DAY:QD
     Route: 058
     Dates: start: 20180427
  9. GATTEX [Suspect]
     Active Substance: TEDUGLUTIDE\WATER
     Dosage: 0.1500 UNK, 1X/DAY:QD
     Route: 058
     Dates: start: 20180427
  10. GATTEX [Suspect]
     Active Substance: TEDUGLUTIDE\WATER
     Dosage: 1.67 MILLIGRAM, 1X/DAY:QD
     Route: 058
     Dates: start: 20190410, end: 20200117
  11. GATTEX [Suspect]
     Active Substance: TEDUGLUTIDE\WATER
     Dosage: 1.67 MILLIGRAM, 1X/DAY:QD
     Route: 058
     Dates: start: 20190410, end: 20200117
  12. GATTEX [Suspect]
     Active Substance: TEDUGLUTIDE\WATER
     Dosage: 1.67 MILLIGRAM, 1X/DAY:QD
     Route: 058
     Dates: start: 20190410, end: 20200117

REACTIONS (8)
  - Drug ineffective [Not Recovered/Not Resolved]
  - Renal failure [Unknown]
  - Asthenia [Unknown]
  - Injection site pain [Not Recovered/Not Resolved]
  - Weight decreased [Unknown]
  - Constipation [Not Recovered/Not Resolved]
  - Nervousness [Unknown]
  - Nephrolithiasis [Not Recovered/Not Resolved]

NARRATIVE: CASE EVENT DATE: 20190106
